FAERS Safety Report 5372842-X (Version None)
Quarter: 2007Q2

REPORT INFORMATION
  Report Type: 
  Country: None (occurrence: None)
  Receive Date: 20070531
  Receipt Date: 20061130
  Transmission Date: 20071010
  Serious: Yes (Hospitalization)
  Sender: FDA-Public Use
  Company Number: WSDF_00592

PATIENT
  Age: 64 Year
  Sex: Male

DRUGS (1)
  1. ANTI -D (RHO) IMMUNOGLOBULIN [Suspect]

REACTIONS (1)
  - INJECTION SITE INFLAMMATION [None]
